FAERS Safety Report 6019112-4 (Version None)
Quarter: 2008Q4

REPORT INFORMATION
  Report Type: 
  Country: None (occurrence: None)
  Receive Date: 20081224
  Receipt Date: 20081202
  Transmission Date: 20090506
  Serious: Yes (Other)
  Sender: FDA-Public Use
  Company Number: US-AVENTIS-200815679US

PATIENT
  Sex: Male
  Weight: 65.9 kg

DRUGS (1)
  1. BENZACLIN [Suspect]
     Indication: ACNE
     Dosage: DOSE: UNK
     Route: 061
     Dates: start: 20080801, end: 20080801

REACTIONS (2)
  - BLINDNESS [None]
  - PHOTOPHOBIA [None]
